FAERS Safety Report 16366148 (Version 1)
Quarter: 2019Q2

REPORT INFORMATION
  Report Type: Spontaneous
  Country: GB (occurrence: GB)
  Receive Date: 20190529
  Receipt Date: 20190529
  Transmission Date: 20190711
  Serious: Yes (Other)
  Sender: FDA-Public Use
  Company Number: PHHY2019GB117463

PATIENT
  Sex: Male

DRUGS (1)
  1. DUOTRAV (ALC) [Suspect]
     Active Substance: TIMOLOL MALEATE\TRAVOPROST
     Indication: PRODUCT USED FOR UNKNOWN INDICATION
     Route: 065

REACTIONS (6)
  - Seizure [Unknown]
  - Heart rate irregular [Unknown]
  - Visual impairment [Unknown]
  - Cataract [Unknown]
  - Diarrhoea [Unknown]
  - Eye infection [Unknown]

NARRATIVE: CASE EVENT DATE: 201904
